FAERS Safety Report 17311609 (Version 1)
Quarter: 2020Q1

REPORT INFORMATION
  Report Type: Spontaneous
  Country: US (occurrence: US)
  Receive Date: 20200123
  Receipt Date: 20200123
  Transmission Date: 20200409
  Serious: No
  Sender: FDA-Public Use
  Company Number: US-ROCHE-2261631

PATIENT

DRUGS (6)
  1. RITUXAN [Suspect]
     Active Substance: RITUXIMAB
     Indication: PRODUCT USED FOR UNKNOWN INDICATION
     Route: 065
  2. PLAQUENIL [Concomitant]
     Active Substance: HYDROXYCHLOROQUINE SULFATE
     Route: 065
  3. CIMZIA [Concomitant]
     Active Substance: CERTOLIZUMAB PEGOL
     Route: 065
  4. SIMPONI ARIA [Concomitant]
     Active Substance: GOLIMUMAB
  5. METHOTREXATE. [Concomitant]
     Active Substance: METHOTREXATE
     Route: 065
  6. REMICADE [Concomitant]
     Active Substance: INFLIXIMAB

REACTIONS (1)
  - Hypersensitivity [Unknown]
